FAERS Safety Report 4604866-1 (Version None)
Quarter: 2005Q1

REPORT INFORMATION
  Report Type: 
  Country: None (occurrence: None)
  Receive Date: 20050217
  Receipt Date: 20050103
  Transmission Date: 20050727
  Serious: Yes (Other)
  Sender: FDA-Public Use
  Company Number: S05-USA-00157-01

PATIENT
  Age: 84 Year
  Sex: Male

DRUGS (6)
  1. NAMENDA [Suspect]
     Indication: DEMENTIA ALZHEIMER'S TYPE
     Dosage: 5 MG BID PO
     Route: 048
     Dates: start: 20041211, end: 20041211
  2. NAMENDA [Suspect]
     Indication: DEMENTIA ALZHEIMER'S TYPE
     Dosage: 5 MG QD PO
     Route: 048
     Dates: start: 20041204, end: 20041210
  3. ARICEPT [Concomitant]
  4. SYNTHROID [Concomitant]
  5. GINKGO BILOBA (GINGKO BILOBA) [Concomitant]
  6. DILANTIN [Concomitant]

REACTIONS (1)
  - CONVULSION [None]
